FAERS Safety Report 16875399 (Version 1)
Quarter: 2019Q4

REPORT INFORMATION
  Report Type: Spontaneous
  Country: US (occurrence: US)
  Receive Date: 20191002
  Receipt Date: 20191002
  Transmission Date: 20200122
  Serious: No
  Sender: FDA-Public Use
  Company Number: US-ZYDUS-038473

PATIENT
  Age: 55 Year
  Sex: Female

DRUGS (2)
  1. THIAMINE. [Concomitant]
     Active Substance: THIAMINE
     Indication: CARDIOVASCULAR EVENT PROPHYLAXIS
     Route: 065
  2. POTASSIUM CITRATE. [Suspect]
     Active Substance: POTASSIUM CITRATE
     Indication: NEPHROLITHIASIS
     Route: 048
     Dates: start: 201906

REACTIONS (6)
  - Feeling of relaxation [Unknown]
  - Musculoskeletal discomfort [Unknown]
  - Agitation [Unknown]
  - Intentional underdose [Unknown]
  - Carpal tunnel syndrome [Unknown]
  - Myalgia [Unknown]

NARRATIVE: CASE EVENT DATE: 201906
